FAERS Safety Report 5960293-6 (Version None)
Quarter: 2008Q4

REPORT INFORMATION
  Report Type: 
  Country: None (occurrence: None)
  Receive Date: 20081118
  Receipt Date: 20081118
  Transmission Date: 20090506
  Serious: Yes (Other)
  Sender: FDA-Public Use
  Company Number: None

PATIENT
  Age: 10 Year
  Weight: 60.782 kg

DRUGS (1)
  1. LUPROLIDE ACETATE 15 MG UNK [Suspect]
     Indication: PRECOCIOUS PUBERTY
     Dosage: 15 MG Q 28 DAYS IM
     Route: 030
     Dates: start: 20040531, end: 20081103

REACTIONS (13)
  - ANXIETY [None]
  - BONE DEVELOPMENT ABNORMAL [None]
  - BONE DISORDER [None]
  - DEPRESSION [None]
  - DIZZINESS [None]
  - GASTRITIS [None]
  - HUNGER [None]
  - INSOMNIA [None]
  - MIGRAINE [None]
  - NAUSEA [None]
  - NERVOUSNESS [None]
  - VOMITING [None]
  - WEIGHT INCREASED [None]
